FAERS Safety Report 9463005 (Version 2)
Quarter: 2013Q4

REPORT INFORMATION
  Report Type: Spontaneous
  Country: GB (occurrence: GB)
  Receive Date: 20130816
  Receipt Date: 20131113
  Transmission Date: 20140711
  Serious: Yes (Life-Threatening, Hospitalization)
  Sender: FDA-Public Use
  Company Number: PHHY2013GB087603

PATIENT
  Age: 58 Year
  Sex: Female

DRUGS (5)
  1. OMEPRAZOLE [Suspect]
     Indication: GASTROOESOPHAGEAL REFLUX DISEASE
     Dosage: 20 MG
     Route: 048
     Dates: start: 20130307, end: 20130512
  2. OMEPRAZOLE [Suspect]
     Indication: ASTHMA
     Dosage: 40 MG
     Route: 048
     Dates: start: 20130513, end: 20130709
  3. OMEPRAZOLE [Suspect]
     Indication: COUGH
  4. BENDROFLUMETHIAZIDE [Concomitant]
     Indication: HYPERTENSION
     Dosage: 2.5 MG, QD
     Dates: start: 20070117, end: 20130709
  5. PERINDOPRIL ERBUMINE [Concomitant]
     Indication: HYPERTENSION
     Dosage: 8 MG, QD
     Dates: start: 20061204, end: 20130709

REACTIONS (5)
  - Renal failure acute [Unknown]
  - Protein urine present [Unknown]
  - Urinary tract infection [Unknown]
  - Tubulointerstitial nephritis [Recovering/Resolving]
  - Nausea [Unknown]
